FAERS Safety Report 6009929-4 (Version None)
Quarter: 2008Q4

REPORT INFORMATION
  Report Type: 
  Country: None (occurrence: None)
  Receive Date: 20081218
  Receipt Date: 20081217
  Transmission Date: 20090506
  Serious: Yes (Other)
  Sender: FDA-Public Use
  Company Number: US-BAYER-200830450NA

PATIENT
  Age: 49 Year
  Sex: Female

DRUGS (2)
  1. BETASERON [Suspect]
     Indication: MULTIPLE SCLEROSIS
     Dosage: TOTAL DAILY DOSE: 2 MIU
     Route: 058
     Dates: start: 20080805
  2. AMBIEN CR [Concomitant]
     Indication: INSOMNIA

REACTIONS (7)
  - DIARRHOEA [None]
  - GAIT DISTURBANCE [None]
  - HYPOAESTHESIA [None]
  - INJECTION SITE DISCOLOURATION [None]
  - MULTIPLE SCLEROSIS [None]
  - VOMITING [None]
  - WEIGHT DECREASED [None]
